FAERS Safety Report 7007990-1 (Version None)
Quarter: 2010Q3

REPORT INFORMATION
  Report Type: 
  Country: None (occurrence: None)
  Receive Date: 20100922
  Receipt Date: 20100909
  Transmission Date: 20110219
  Serious: Yes (Hospitalization, Other)
  Sender: FDA-Public Use
  Company Number: PHHY2010PL60212

PATIENT
  Sex: Male
  Weight: 70 kg

DRUGS (7)
  1. MYFORTIC [Suspect]
     Indication: RENAL TRANSPLANT
     Dosage: 1440 MG
     Route: 048
     Dates: start: 20100410
  2. MYFORTIC [Suspect]
     Dosage: 720 MG/24H
     Route: 048
     Dates: end: 20100523
  3. TACROLIMUS [Concomitant]
     Indication: RENAL TRANSPLANT
     Dosage: 11 MG/24 HOURS
     Dates: start: 20100410
  4. ENCORTON [Concomitant]
     Indication: RENAL TRANSPLANT
     Dosage: 20 MG
     Dates: start: 20100410
  5. CERTICAN [Concomitant]
     Dosage: 1.5 MG/DAY
  6. SANDIMMUNE [Concomitant]
     Route: 042
  7. CYCLOSPORINE [Concomitant]
     Route: 048

REACTIONS (6)
  - ASTHENIA [None]
  - BLOOD CREATININE INCREASED [None]
  - DIARRHOEA [None]
  - HAEMODIALYSIS [None]
  - NERVOUS SYSTEM DISORDER [None]
  - URINE OUTPUT DECREASED [None]
